FAERS Safety Report 6723869-4 (Version None)
Quarter: 2010Q2

REPORT INFORMATION
  Report Type: 
  Country: None (occurrence: None)
  Receive Date: 20100513
  Receipt Date: 20100305
  Transmission Date: 20101027
  Serious: Yes (Hospitalization, Other)
  Sender: FDA-Public Use
  Company Number: TW-ROCHE-674767

PATIENT
  Sex: Male
  Weight: 48.9 kg

DRUGS (4)
  1. PEGASYS [Suspect]
     Indication: HEPATITIS C
     Route: 058
     Dates: start: 20091127, end: 20091203
  2. ROBATROL [Suspect]
     Indication: HEPATITIS C
     Route: 048
     Dates: start: 20091127, end: 20091201
  3. ACETAL [Concomitant]
     Route: 048
  4. LORAZEPAM [Concomitant]
     Dosage: DRUG REPORTED AS LORAZEPAM (ANXEIDIN) FREQUENCY: HS.

REACTIONS (6)
  - CONVULSION [None]
  - DECREASED APPETITE [None]
  - PLATELET COUNT DECREASED [None]
  - TRANSIENT ISCHAEMIC ATTACK [None]
  - VOMITING [None]
  - WHITE BLOOD CELL COUNT DECREASED [None]
